FAERS Safety Report 22239237 (Version 9)
Quarter: 2025Q4

REPORT INFORMATION
  Report Type: Spontaneous
  Country: EU (occurrence: EU)
  Receive Date: 20230421
  Receipt Date: 20251120
  Transmission Date: 20260118
  Serious: Yes (Death, Hospitalization, Disabling, Other)
  Sender: GILEAD
  Company Number: EU-GILEAD-2023-0624192

PATIENT
  Age: 37 Year
  Sex: Female
  Weight: 62 kg

DRUGS (15)
  1. YESCARTA [Suspect]
     Active Substance: AXICABTAGENE CILOLEUCEL
     Indication: B-cell lymphoma
     Dosage: 68 ML, TOTAL
     Route: 042
     Dates: start: 20230327, end: 20230327
  2. CYCLOPHOSPHAMIDE [Concomitant]
     Active Substance: CYCLOPHOSPHAMIDE
     Indication: Lymphodepletion
     Dosage: 1 G
     Route: 065
     Dates: start: 20230322, end: 20230324
  3. FLUDARABINE [Concomitant]
     Active Substance: FLUDARABINE PHOSPHATE
     Indication: Lymphodepletion
     Dosage: UNK
     Route: 065
     Dates: start: 20230222, end: 20230224
  4. CYCLOPHOSPHAMIDE;DEXAMETHASONE [Concomitant]
     Indication: B-cell lymphoma
     Dosage: UNK, BRIDGE THERAPY
     Route: 065
     Dates: start: 20230303, end: 20230306
  5. DEXCHLORPHENIRAMINE [Concomitant]
     Active Substance: DEXCHLORPHENIRAMINE
     Dosage: UNK
     Route: 065
  6. ACETAMINOPHEN [Concomitant]
     Active Substance: ACETAMINOPHEN
     Dosage: UNK
     Route: 065
     Dates: start: 20230326, end: 20230401
  7. VITAMIN E [Concomitant]
     Active Substance: .ALPHA.-TOCOPHEROL
     Dosage: UNK
     Route: 065
     Dates: start: 20230326, end: 20230401
  8. LEVETIRACETAM [Concomitant]
     Active Substance: LEVETIRACETAM
     Dosage: UNK
     Route: 065
     Dates: start: 20230326, end: 20230401
  9. ACYCLOVIR [Concomitant]
     Active Substance: ACYCLOVIR
     Dosage: UNK
     Route: 065
     Dates: start: 20230326, end: 20230401
  10. PIPERACILLIN AND TAZOBACTAM [Concomitant]
     Active Substance: PIPERACILLIN SODIUM\TAZOBACTAM SODIUM
     Dosage: UNK
     Route: 065
     Dates: start: 20230328, end: 20230401
  11. PIPERACILLIN SODIUM\TAZOBACTAM SODIUM [Concomitant]
     Active Substance: PIPERACILLIN SODIUM\TAZOBACTAM SODIUM
     Dosage: UNK
     Route: 065
     Dates: start: 20230328, end: 20230401
  12. NIVOLUMAB [Concomitant]
     Active Substance: NIVOLUMAB
     Route: 065
  13. CYCLOPHOSPHAMIDE [Concomitant]
     Active Substance: CYCLOPHOSPHAMIDE
     Indication: Lymphodepletion
     Dosage: 1 G
     Route: 065
  14. CYCLOPHOSPHAMIDE [Concomitant]
     Active Substance: CYCLOPHOSPHAMIDE
     Dosage: UNK
     Route: 065
     Dates: start: 20230322, end: 20230324
  15. .ALPHA.-TOCOPHEROL [Concomitant]
     Active Substance: .ALPHA.-TOCOPHEROL
     Dosage: UNK
     Route: 065
     Dates: start: 20230326, end: 20230401

REACTIONS (17)
  - Brain oedema [Fatal]
  - Hydrocephalus [Fatal]
  - Cerebral haemorrhage [Fatal]
  - Drug interaction [Fatal]
  - Intracranial pressure increased [Fatal]
  - Neurogenic shock [Fatal]
  - Somnolence [Fatal]
  - Dysarthria [Fatal]
  - Anisocoria [Fatal]
  - Disturbance in attention [Fatal]
  - Neurotoxicity [Fatal]
  - Immune effector cell-associated neurotoxicity syndrome [Fatal]
  - Cytokine release syndrome [Fatal]
  - Coma [Not Recovered/Not Resolved]
  - Neurosurgery [Unknown]
  - Oedema [Not Recovered/Not Resolved]
  - Cytopenia [Not Recovered/Not Resolved]

NARRATIVE: CASE EVENT DATE: 20230328
